FAERS Safety Report 13931440 (Version 2)
Quarter: 2017Q4

REPORT INFORMATION
  Report Type: Report from Study
  Country: IN (occurrence: IN)
  Receive Date: 20170903
  Receipt Date: 20171004
  Transmission Date: 20180320
  Serious: Yes (Other)
  Sender: FDA-Public Use
  Company Number: PHHY2017IN128377

PATIENT
  Age: 57 Year
  Sex: Male
  Weight: 66 kg

DRUGS (1)
  1. SPEXIB [Suspect]
     Active Substance: CERITINIB
     Indication: NON-SMALL CELL LUNG CANCER
     Dosage: 750 MG, QD
     Route: 048
     Dates: start: 20170810, end: 20170923

REACTIONS (5)
  - Malignant neoplasm progression [Unknown]
  - Cough [Unknown]
  - Non-small cell lung cancer [Unknown]
  - Thrombosis [Unknown]
  - Nasopharyngitis [Recovering/Resolving]

NARRATIVE: CASE EVENT DATE: 20170915
